FAERS Safety Report 17594980 (Version 1)
Quarter: 2020Q1

REPORT INFORMATION
  Report Type: Report from Study
  Country: CA (occurrence: CA)
  Receive Date: 20200328
  Receipt Date: 20200328
  Transmission Date: 20200409
  Serious: Yes (Other)
  Sender: FDA-Public Use
  Company Number: NVSC2020CA047728

PATIENT
  Sex: Male

DRUGS (6)
  1. VOLTAREN [Concomitant]
     Active Substance: DICLOFENAC SODIUM
     Indication: JUVENILE IDIOPATHIC ARTHRITIS
     Route: 061
  2. INDOMETHACIN. [Concomitant]
     Active Substance: INDOMETHACIN
     Indication: JUVENILE IDIOPATHIC ARTHRITIS
     Route: 048
  3. CORTISONE [Concomitant]
     Active Substance: CORTISONE
     Indication: JUVENILE IDIOPATHIC ARTHRITIS
     Route: 030
  4. DICLOFENAC [Suspect]
     Active Substance: DICLOFENAC
     Indication: JUVENILE IDIOPATHIC ARTHRITIS
     Dosage: UNK
     Route: 065
  5. NAPROXEN. [Suspect]
     Active Substance: NAPROXEN
     Indication: JUVENILE IDIOPATHIC ARTHRITIS
     Route: 048
  6. INDOCID [Concomitant]
     Active Substance: INDOMETHACIN
     Indication: PRODUCT USED FOR UNKNOWN INDICATION
     Dosage: UNK
     Route: 065

REACTIONS (3)
  - Therapeutic response decreased [Unknown]
  - Renal impairment [Unknown]
  - Pain [Unknown]
